FAERS Safety Report 6412382-X (Version None)
Quarter: 2009Q4

REPORT INFORMATION
  Report Type: 
  Country: None (occurrence: None)
  Receive Date: 20091023
  Receipt Date: 20091014
  Transmission Date: 20100525
  Serious: Yes (Hospitalization)
  Sender: FDA-Public Use
  Company Number: FR-EISAI INC.-E3810-03231-SPO-FR

PATIENT
  Sex: Female

DRUGS (7)
  1. PARIET (RABEPRAZOLE) [Suspect]
     Route: 048
  2. PARIET (RABEPRAZOLE) [Suspect]
     Route: 048
  3. ESCITALOPRAM OXALATE [Suspect]
     Route: 048
  4. ACETYLSALICYLATE LYSINE 75 [Concomitant]
  5. NOCTRAN [Concomitant]
  6. LORAZEPAM [Concomitant]
  7. BROMPHENIRAMINE MALEATE [Concomitant]

REACTIONS (3)
  - DISORIENTATION [None]
  - FALL [None]
  - HYPONATRAEMIA [None]
